FAERS Safety Report 23148840 (Version 1)
Quarter: 2023Q4

REPORT INFORMATION
  Report Type: Spontaneous
  Country: FR (occurrence: FR)
  Receive Date: 20231106
  Receipt Date: 20231106
  Transmission Date: 20240110
  Serious: Yes (Hospitalization)
  Sender: FDA-Public Use
  Company Number: None

PATIENT
  Age: 73 Year
  Sex: Male
  Weight: 126 kg

DRUGS (13)
  1. EPLERENONE [Suspect]
     Active Substance: EPLERENONE
     Indication: Cardiac failure
     Dosage: 25 MG, FILM-COATED TABLET
     Dates: end: 20230614
  2. BISOPROLOL FUMARATE [Suspect]
     Active Substance: BISOPROLOL FUMARATE
     Indication: Cardiac failure
     Dates: start: 20230614, end: 20230614
  3. IRBESARTAN [Suspect]
     Active Substance: IRBESARTAN
     Indication: Wrong patient
     Dosage: 150 MG, FILM-COATED TABLET
     Dates: start: 20230614, end: 20230614
  4. ELIQUIS [Suspect]
     Active Substance: APIXABAN
     Indication: Transcatheter aortic valve implantation
     Dosage: 5 MG, FILM-COATED TABLET
     Dates: end: 20230614
  5. LYRICA [Suspect]
     Active Substance: PREGABALIN
     Indication: Product used for unknown indication
     Dosage: 100 MG, CAPSULE
     Dates: end: 20230614
  6. INSULIN NOS [Suspect]
     Active Substance: INSULIN NOS
     Indication: Product used for unknown indication
     Dates: end: 20230614
  7. TAMSULOSIN [Suspect]
     Active Substance: TAMSULOSIN
     Indication: Product used for unknown indication
     Dosage: EG L.P. 0.4 MG, PROLONGED RELEASE CAPSULE
     Dates: end: 20230614
  8. RISPERDAL [Suspect]
     Active Substance: RISPERIDONE
     Indication: Wrong patient
     Dosage: 0.50 MG, FILM-COATED TABLET
     Dates: start: 20230614, end: 20230614
  9. LOXAPINE [Suspect]
     Active Substance: LOXAPINE
     Indication: Wrong patient
     Dosage: 50 MG, FILM-COATED TABLET
     Dates: start: 20230614, end: 20230614
  10. FUROSEMIDE [Suspect]
     Active Substance: FUROSEMIDE
     Indication: Product used for unknown indication
     Dosage: 500 MG, SCORED TABLET
     Dates: end: 20230614
  11. TIAPRIDE HYDROCHLORIDE [Suspect]
     Active Substance: TIAPRIDE HYDROCHLORIDE
     Indication: Wrong patient
     Dates: start: 20230614, end: 20230614
  12. ESCITALOPRAM OXALATE [Suspect]
     Active Substance: ESCITALOPRAM OXALATE
     Indication: Depression
     Dosage: 10 MG, SCORED FILM-COATED TABLET
     Dates: end: 20230614
  13. METFORMIN [Suspect]
     Active Substance: METFORMIN HYDROCHLORIDE
     Indication: Wrong patient
     Dosage: 1000 MG, FILM-COATED TABLET
     Dates: start: 20230614, end: 20230614

REACTIONS (3)
  - Product administration error [Not Recovered/Not Resolved]
  - Haemodynamic instability [Not Recovered/Not Resolved]
  - Disturbance in attention [Not Recovered/Not Resolved]

NARRATIVE: CASE EVENT DATE: 20230614
